FAERS Safety Report 16072439 (Version 1)
Quarter: 2019Q1

REPORT INFORMATION
  Report Type: Spontaneous
  Country: US (occurrence: US)
  Receive Date: 20190314
  Receipt Date: 20190314
  Transmission Date: 20190418
  Serious: No
  Sender: FDA-Public Use
  Company Number: US-ALLERGAN-1842052US

PATIENT
  Sex: Male

DRUGS (3)
  1. DELZICOL [Suspect]
     Active Substance: MESALAMINE
     Indication: COLITIS ULCERATIVE
     Dosage: 800 MG, TID
     Route: 048
     Dates: start: 201807
  2. HUMIRA [Concomitant]
     Active Substance: ADALIMUMAB
     Indication: COLITIS
     Dosage: UNK
  3. DELZICOL [Suspect]
     Active Substance: MESALAMINE
     Dosage: ACTUAL: 2 CAPSULES OF 400MG DOSE TID OR 3 CAPSULES BID
     Route: 048
     Dates: start: 2015

REACTIONS (2)
  - Inappropriate schedule of product administration [Unknown]
  - Product dose omission [Unknown]
